FAERS Safety Report 5314658-6 (Version None)
Quarter: 2007Q2

REPORT INFORMATION
  Report Type: 
  Country: None (occurrence: None)
  Receive Date: 20070502
  Receipt Date: 20070423
  Transmission Date: 20071010
  Serious: Yes (Hospitalization)
  Sender: FDA-Public Use
  Company Number: TW-JNJFOC-20070307220

PATIENT
  Age: 65 Year
  Sex: Female

DRUGS (2)
  1. GALANTAMINE HYDROBROMIDE [Suspect]
     Indication: DRUG THERAPY
     Dosage: AT NIGHT
     Route: 048
  2. VALPROIC ACID [Suspect]
     Indication: DEMENTIA

REACTIONS (1)
  - PLEUROTHOTONUS [None]
